FAERS Safety Report 23517218 (Version 1)
Quarter: 2024Q1

REPORT INFORMATION
  Report Type: 
  Country: None (occurrence: None)
  Receive Date: 20240213
  Receipt Date: 20240213
  Transmission Date: 20240410
  Serious: No
  Sender: FDA-Public Use
  Company Number: GB-ROCHE-3269223

PATIENT

DRUGS (1)
  1. OCREVUS [Suspect]
     Active Substance: OCRELIZUMAB
     Dosage: YES

REACTIONS (7)
  - Ear pruritus [None]
  - Throat irritation [None]
  - COVID-19 [None]
  - Muscular weakness [None]
  - Type 1 diabetes mellitus [None]
  - Ear pruritus [None]
  - Gingivitis [None]

NARRATIVE: CASE EVENT DATE: 20230120
